FAERS Safety Report 6596960-3 (Version None)
Quarter: 2010Q1

REPORT INFORMATION
  Report Type: 
  Country: None (occurrence: None)
  Receive Date: 20100222
  Receipt Date: 20100222
  Transmission Date: 20100710
  Serious: Yes (Other)
  Sender: FDA-Public Use
  Company Number: None

PATIENT
  Age: 70 Year
  Sex: Female
  Weight: 59.8748 kg

DRUGS (7)
  1. REMICADE [Suspect]
     Indication: RHEUMATOID ARTHRITIS
     Dosage: 500 MG EVERY 12 WEEKS IV DRIP
     Route: 041
     Dates: start: 20010101, end: 20091020
  2. METHOTREXATE [Concomitant]
  3. FOLIC ACID [Concomitant]
  4. CALCIUM [Concomitant]
  5. VITAMIN D [Concomitant]
  6. RECLAST [Concomitant]
  7. OMEPRAZOLE [Concomitant]

REACTIONS (4)
  - LUPUS-LIKE SYNDROME [None]
  - LYMPHADENOPATHY [None]
  - PRURITUS [None]
  - SYSTEMIC LUPUS ERYTHEMATOSUS [None]
